FAERS Safety Report 5509764-7 (Version None)
Quarter: 2007Q4

REPORT INFORMATION
  Report Type: 
  Country: None (occurrence: None)
  Receive Date: 20071108
  Receipt Date: 20071018
  Transmission Date: 20080405
  Serious: Yes (Other)
  Sender: FDA-Public Use
  Company Number: US-BAYER-200712107BWH

PATIENT
  Age: 24 Year
  Sex: Male
  Weight: 70 kg

DRUGS (2)
  1. CIPRO [Suspect]
     Indication: PROCEDURAL PAIN
     Dosage: TOTAL DAILY DOSE: 1000 MG  UNIT DOSE: 500 MG
     Route: 048
     Dates: start: 20070209, end: 20070213
  2. SYNTHROID [Concomitant]

REACTIONS (9)
  - ANXIETY [None]
  - CYANOSIS [None]
  - DIZZINESS [None]
  - INSOMNIA [None]
  - OEDEMA PERIPHERAL [None]
  - TENDONITIS [None]
  - TINNITUS [None]
  - TREMOR [None]
  - VISION BLURRED [None]
